FAERS Safety Report 5691528-5 (Version None)
Quarter: 2008Q2

REPORT INFORMATION
  Report Type: 
  Country: None (occurrence: None)
  Receive Date: 20080402
  Receipt Date: 20080324
  Transmission Date: 20081010
  Serious: Yes (Death, Hospitalization)
  Sender: FDA-Public Use
  Company Number: BR-JNJFOC-20080301458

PATIENT
  Sex: Female
  Weight: 62 kg

DRUGS (5)
  1. REMICADE [Suspect]
     Route: 042
  2. REMICADE [Suspect]
     Route: 042
  3. REMICADE [Suspect]
     Indication: ANKYLOSING SPONDYLITIS
     Route: 042
  4. METHOTREXATE [Concomitant]
     Dosage: }3 YEARS
     Route: 048
  5. PREDNISONE [Concomitant]
     Dosage: }3 YEARS
     Route: 048

REACTIONS (3)
  - ENCEPHALITIS HERPES [None]
  - MULTI-ORGAN FAILURE [None]
  - UVEITIS [None]
